FAERS Safety Report 7421642-5 (Version None)
Quarter: 2011Q1

REPORT INFORMATION
  Report Type: 
  Country: None (occurrence: None)
  Receive Date: 20110302
  Receipt Date: 20101217
  Transmission Date: 20110831
  Serious: No
  Sender: FDA-Public Use
  Company Number: 024007

PATIENT
  Sex: Female
  Weight: 69.3 kg

DRUGS (14)
  1. POTASSIUM [Concomitant]
  2. BLACK COHOSH [Concomitant]
  3. VITAMIN B-12 [Concomitant]
  4. NEXIUM [Concomitant]
  5. MULTI-VITAMIN [Concomitant]
  6. PENTASA [Concomitant]
  7. FOLIC ACID [Concomitant]
  8. CLARITIN [Concomitant]
  9. SILYBUM MARIANUM [Concomitant]
  10. CIMZIA [Suspect]
     Indication: CROHN'S DISEASE
     Dosage: 400 MG, INDUCTION DOSE SUBCUTANEOUS
     Route: 058
     Dates: start: 20101216
  11. ENTOCORT EC [Concomitant]
  12. METOPROLOL SUCCINATE [Concomitant]
  13. ASPIRIN [Concomitant]
  14. IMODIUM [Concomitant]

REACTIONS (3)
  - DIARRHOEA [None]
  - FAECES DISCOLOURED [None]
  - INJECTION SITE DISCOLOURATION [None]
